FAERS Safety Report 18584171 (Version 1)
Quarter: 2020Q4

REPORT INFORMATION
  Report Type: Spontaneous
  Country: US (occurrence: US)
  Receive Date: 20201207
  Receipt Date: 20201207
  Transmission Date: 20210114
  Serious: Yes (Death, Hospitalization)
  Sender: FDA-Public Use
  Company Number: US-HIKMA PHARMACEUTICALS USA INC.-US-H14001-20-05405

PATIENT
  Age: 37 Year
  Sex: Male

DRUGS (1)
  1. PREDNISONE. [Suspect]
     Active Substance: PREDNISONE
     Indication: EOSINOPHILIC PNEUMONIA
     Dosage: UNKNOWN
     Route: 065

REACTIONS (5)
  - Septic shock [Fatal]
  - Pneumonitis [Fatal]
  - Nocardiosis [Fatal]
  - Brain abscess [Fatal]
  - Bronchopulmonary aspergillosis [Fatal]
